FAERS Safety Report 11060784 (Version 1)
Quarter: 2015Q2

REPORT INFORMATION
  Report Type: Spontaneous
  Country: US (occurrence: US)
  Receive Date: 20150423
  Receipt Date: 20150423
  Transmission Date: 20150821
  Serious: Yes (Other)
  Sender: FDA-Public Use
  Company Number: US-ALLERGAN-1507172US

PATIENT
  Age: 26 Year
  Sex: Female

DRUGS (2)
  1. BOTOX COSMETIC [Suspect]
     Active Substance: ONABOTULINUMTOXINA
     Indication: SKIN WRINKLING
     Dosage: 20 UNITS, TOTAL (10 UNITS EACH - FRONTAILS AND CORRUGATORS)
     Route: 030
     Dates: start: 20150410, end: 20150410
  2. BOTOX COSMETIC [Suspect]
     Active Substance: ONABOTULINUMTOXINA
     Indication: SKIN WRINKLING
     Dosage: 20 UNITS, TOTAL (10 UNITS EACH - FRONTAILS AND CORRUGATORS)
     Route: 030
     Dates: start: 20150410, end: 20150410

REACTIONS (2)
  - Rash [Unknown]
  - Throat tightness [Unknown]

NARRATIVE: CASE EVENT DATE: 20150410
